FAERS Safety Report 11081147 (Version 1)
Quarter: 2015Q2

REPORT INFORMATION
  Report Type: Spontaneous
  Country: US (occurrence: None)
  Receive Date: 20150424
  Receipt Date: 20150424
  Transmission Date: 20150821
  Serious: Yes (Other)
  Sender: FDA-Public Use
  Company Number: FK201500980

PATIENT
  Age: 43 Year
  Sex: Male
  Weight: 86.18 kg

DRUGS (6)
  1. OPANA [Concomitant]
     Active Substance: OXYMORPHONE HYDROCHLORIDE
  2. TYLENOL [Concomitant]
     Active Substance: ACETAMINOPHEN
  3. DEXILANT [Concomitant]
     Active Substance: DEXLANSOPRAZOLE
  4. METHOTREXATE INJECTION, USP (METHOTREXATE SODIUM) (METHOTREXATE SODIUM) [Suspect]
     Active Substance: METHOTREXATE SODIUM
     Indication: RHEUMATOID ARTHRITIS
     Dosage: 10 MG, 1 WK
     Route: 058
  5. ESCITALOPRAM [Concomitant]
     Active Substance: ESCITALOPRAM OXALATE
  6. TRAMADOL [Concomitant]
     Active Substance: TRAMADOL

REACTIONS (3)
  - Abdominal discomfort [None]
  - Contusion [None]
  - Fatigue [None]
